FAERS Safety Report 9370549 (Version 2)
Quarter: 2013Q3

REPORT INFORMATION
  Report Type: Spontaneous
  Country: US (occurrence: US)
  Receive Date: 20130626
  Receipt Date: 20130730
  Transmission Date: 20140515
  Serious: Yes (Other)
  Sender: FDA-Public Use
  Company Number: US-TEVA-414130USA

PATIENT
  Sex: Female

DRUGS (2)
  1. NUVIGIL [Suspect]
     Route: 048
  2. BENADRYL [Suspect]

REACTIONS (4)
  - Anaphylactic reaction [Unknown]
  - Rash [Recovered/Resolved]
  - Lip swelling [Recovered/Resolved]
  - Mouth ulceration [Recovered/Resolved]
